FAERS Safety Report 21177659 (Version 1)
Quarter: 2022Q3

REPORT INFORMATION
  Report Type: Spontaneous
  Country: GB (occurrence: GB)
  Receive Date: 20220805
  Receipt Date: 20220805
  Transmission Date: 20221027
  Serious: Yes (Other)
  Sender: FDA-Public Use
  Company Number: GB-SUN PHARMACEUTICAL INDUSTRIES LTD-2022RR-347745

PATIENT
  Age: 33 Week

DRUGS (3)
  1. FLECAINIDE [Suspect]
     Active Substance: FLECAINIDE
     Indication: Tachycardia
     Dosage: 100 MILLIGRAM, TID
     Route: 064
  2. SOTALOL [Suspect]
     Active Substance: SOTALOL
     Indication: Tachycardia
     Dosage: 80 MILLIGRAM
     Route: 064
  3. AMIODARONE [Suspect]
     Active Substance: AMIODARONE
     Indication: Tachycardia

REACTIONS (3)
  - Foetal exposure during pregnancy [Unknown]
  - Premature baby [Unknown]
  - Drug ineffective [Unknown]
